FAERS Safety Report 13031119 (Version 3)
Quarter: 2016Q4

REPORT INFORMATION
  Report Type: Spontaneous
  Country: LT (occurrence: LT)
  Receive Date: 20161215
  Receipt Date: 20161226
  Transmission Date: 20170207
  Serious: Yes (Life-Threatening, Hospitalization)
  Sender: FDA-Public Use
  Company Number: LT-ELI_LILLY_AND_COMPANY-LT201612005790

PATIENT
  Age: 60 Year
  Sex: Male

DRUGS (1)
  1. ERBITUX [Suspect]
     Active Substance: CETUXIMAB
     Indication: SQUAMOUS CELL CARCINOMA OF HEAD AND NECK
     Dosage: 700 MG, UNKNOWN
     Route: 042
     Dates: start: 20161013, end: 20161013

REACTIONS (4)
  - Bronchospasm [Recovered/Resolved]
  - Disorientation [Recovered/Resolved]
  - Blood pressure decreased [Recovered/Resolved]
  - Dyspnoea [Recovered/Resolved]

NARRATIVE: CASE EVENT DATE: 20161013
